FAERS Safety Report 6862370-4 (Version None)
Quarter: 2010Q3

REPORT INFORMATION
  Report Type: 
  Country: None (occurrence: None)
  Receive Date: 20100721
  Receipt Date: 20100709
  Transmission Date: 20110219
  Serious: Yes (Other)
  Sender: FDA-Public Use
  Company Number: JP-JNJFOC-20100703609

PATIENT

DRUGS (1)
  1. FENTANYL [Suspect]
     Indication: CANCER PAIN
     Route: 062

REACTIONS (4)
  - ANXIETY [None]
  - DELIRIUM [None]
  - DEPRESSED MOOD [None]
  - SOMNOLENCE [None]
